FAERS Safety Report 18954460 (Version 1)
Quarter: 2021Q1

REPORT INFORMATION
  Report Type: Spontaneous
  Country: ES (occurrence: ES)
  Receive Date: 20210301
  Receipt Date: 20210301
  Transmission Date: 20210420
  Serious: Yes (Other)
  Sender: FDA-Public Use
  Company Number: ES-GUERBET-ES-20210009

PATIENT
  Age: 88 Year
  Sex: Female

DRUGS (2)
  1. LIPIODOL [Suspect]
     Active Substance: ETHIODIZED OIL
     Indication: SCLEROTHERAPY
  2. CYANOACRYLATE [Concomitant]
     Active Substance: OCRYLATE
     Indication: SCLEROTHERAPY

REACTIONS (2)
  - Aspiration [Unknown]
  - Product use issue [Unknown]
